FAERS Safety Report 15352361 (Version 1)
Quarter: 2018Q3

REPORT INFORMATION
  Report Type: Spontaneous
  Country: FR (occurrence: FR)
  Receive Date: 20180905
  Receipt Date: 20180905
  Transmission Date: 20181010
  Serious: Yes (Life-Threatening)
  Sender: FDA-Public Use
  Company Number: FR-PFIZER INC-2018353392

PATIENT
  Age: 56 Year
  Sex: Female
  Weight: 118 kg

DRUGS (3)
  1. REMIFENTANIL [Suspect]
     Active Substance: REMIFENTANIL
     Indication: ANAESTHESIA
     Dosage: 6 UG/ML, SINGLE
     Route: 042
     Dates: start: 20180727, end: 20180727
  2. ESMERON [Suspect]
     Active Substance: ROCURONIUM BROMIDE
     Indication: ANAESTHESIA
     Dosage: 80 MG, SINGLE
     Route: 042
     Dates: start: 20180727, end: 20180727
  3. PROPOFOL. [Suspect]
     Active Substance: PROPOFOL
     Indication: ANAESTHESIA
     Dosage: 300 MG, SINGLE
     Route: 042
     Dates: start: 20180727, end: 20180727

REACTIONS (1)
  - Anaphylactic shock [Recovered/Resolved]

NARRATIVE: CASE EVENT DATE: 20180727
